FAERS Safety Report 7912994-8 (Version None)
Quarter: 2011Q4

REPORT INFORMATION
  Report Type: 
  Country: None (occurrence: None)
  Receive Date: 20111114
  Receipt Date: 20111103
  Transmission Date: 20120403
  Serious: Yes (Other)
  Sender: FDA-Public Use
  Company Number: SA-BRISTOL-MYERS SQUIBB COMPANY-16219412

PATIENT
  Age: 44 Year
  Sex: Female

DRUGS (6)
  1. CALCIUM [Concomitant]
  2. HYDROXYCHLOROQUINE SULFATE [Concomitant]
  3. TRAMADOL HCL [Concomitant]
     Dosage: AS NECESSARY.
  4. METFORMIN HCL [Suspect]
     Indication: TYPE 2 DIABETES MELLITUS
  5. PREDNISOLONE [Concomitant]
  6. ASPIRIN [Concomitant]

REACTIONS (2)
  - HEPATOTOXICITY [None]
  - ALANINE AMINOTRANSFERASE INCREASED [None]
